FAERS Safety Report 18186138 (Version 1)
Quarter: 2020Q3

REPORT INFORMATION
  Report Type: Spontaneous
  Country: US (occurrence: US)
  Receive Date: 20200824
  Receipt Date: 20200824
  Transmission Date: 20201103
  Serious: No
  Sender: FDA-Public Use
  Company Number: US-BAYER-2020-172561

PATIENT
  Age: 76 Year
  Sex: Male

DRUGS (4)
  1. LORATADINE. [Suspect]
     Active Substance: LORATADINE
     Indication: PRURITUS
     Dosage: UNK
  2. LORATADINE. [Suspect]
     Active Substance: LORATADINE
     Indication: DERMATITIS CONTACT
  3. LORATADINE. [Suspect]
     Active Substance: LORATADINE
     Indication: URTICARIAL DERMATITIS
  4. LORATADINE. [Suspect]
     Active Substance: LORATADINE
     Indication: DRUG ERUPTION

REACTIONS (1)
  - Treatment failure [None]
